FAERS Safety Report 4892062-2 (Version None)
Quarter: 2006Q1

REPORT INFORMATION
  Report Type: 
  Country: None (occurrence: None)
  Receive Date: 20060126
  Receipt Date: 20050714
  Transmission Date: 20060701
  Serious: Yes (Death, Hospitalization)
  Sender: FDA-Public Use
  Company Number: 2005AP03987

PATIENT
  Age: 21108 Day
  Sex: Female

DRUGS (11)
  1. TESAGLITAZAR [Suspect]
     Indication: DIABETES MELLITUS NON-INSULIN-DEPENDENT
     Route: 048
     Dates: start: 20050602, end: 20050718
  2. METFORMIN HCL [Suspect]
     Indication: DIABETES MELLITUS NON-INSULIN-DEPENDENT
     Route: 048
     Dates: end: 20050714
  3. VASOCARDOL CD [Concomitant]
     Indication: HYPERTENSION
     Dosage: }6 MONTHS FROM STUDY START
     Route: 048
     Dates: end: 20050727
  4. PLAVIX [Concomitant]
     Indication: ATRIAL FIBRILLATION
     Dosage: }6 MONTHS FROM STUDY START
     Route: 048
     Dates: end: 20050722
  5. LANSOPRAZOLE [Concomitant]
     Indication: GASTROOESOPHAGEAL REFLUX DISEASE
     Dosage: }6 MONTHS FROM STUDY START
     Route: 048
     Dates: end: 20050727
  6. MOTILIUM [Concomitant]
     Indication: GASTROOESOPHAGEAL REFLUX DISEASE
     Dosage: }6 MONTHS FROM STUDY START
     Route: 048
     Dates: end: 20050727
  7. DITROPAN [Concomitant]
     Indication: BLADDER DISORDER
     Dosage: }6 MONTHS FROM STUDY START
     Route: 048
     Dates: end: 20050626
  8. TOFRANIL [Concomitant]
     Indication: INSOMNIA
     Dosage: }6 MONTHS FROM STUDY START
     Route: 048
     Dates: end: 20050727
  9. VENTOLIN [Concomitant]
     Indication: ASTHMA
     Dosage: }6 MONTHS FROM STUDY START
     Route: 055
     Dates: end: 20050904
  10. FLIXOTIDE [Concomitant]
     Indication: ASTHMA
     Dosage: }6 MONTHS FROM STUDY START
     Route: 055
     Dates: end: 20050626
  11. SPIRIVA [Concomitant]
     Indication: ASTHMA
     Dosage: }6 MONTHS FROM STUDY START
     Route: 055
     Dates: end: 20050727

REACTIONS (29)
  - ABDOMINAL SEPSIS [None]
  - ANAEMIA [None]
  - ATELECTASIS [None]
  - BLOOD PRESSURE INCREASED [None]
  - CANDIDIASIS [None]
  - CARDIAC FAILURE CONGESTIVE [None]
  - CARDIOMEGALY [None]
  - CHOLELITHIASIS [None]
  - DIARRHOEA [None]
  - ENTEROBACTER INFECTION [None]
  - FUNGAL SEPSIS [None]
  - HAEMOTHORAX [None]
  - HEPATIC FAILURE [None]
  - ILEUS [None]
  - INFLUENZA LIKE ILLNESS [None]
  - INSOMNIA [None]
  - INTESTINAL PERFORATION [None]
  - MASS [None]
  - MITRAL VALVE INCOMPETENCE [None]
  - NEUROPATHY [None]
  - PLEURAL EFFUSION [None]
  - PNEUMONIA [None]
  - PULMONARY HYPERTENSION [None]
  - PULMONARY OEDEMA [None]
  - RENAL FAILURE ACUTE [None]
  - SEPSIS [None]
  - STAPHYLOCOCCAL INFECTION [None]
  - TRICUSPID VALVE INCOMPETENCE [None]
  - URINARY TRACT INFECTION [None]
